FAERS Safety Report 11274514 (Version 1)
Quarter: 2015Q3

REPORT INFORMATION
  Report Type: Report from Study
  Country: BR (occurrence: BR)
  Receive Date: 20150715
  Receipt Date: 20150715
  Transmission Date: 20151125
  Serious: Yes (Life-Threatening, Hospitalization)
  Sender: FDA-Public Use
  Company Number: PHHY2015BR084991

PATIENT
  Sex: Male
  Weight: 52 kg

DRUGS (1)
  1. EXJADE [Suspect]
     Active Substance: DEFERASIROX
     Indication: IRON OVERLOAD
     Dosage: 2 DF, UNK
     Route: 065

REACTIONS (4)
  - Anaemia [Unknown]
  - Coma [Unknown]
  - Urinary tract infection [Recovered/Resolved]
  - Abasia [Unknown]
